FAERS Safety Report 23482366 (Version 1)
Quarter: 2024Q1

REPORT INFORMATION
  Report Type: Spontaneous
  Country: CZ (occurrence: CZ)
  Receive Date: 20240205
  Receipt Date: 20240205
  Transmission Date: 20240410
  Serious: Yes (Other)
  Sender: FDA-Public Use
  Company Number: None

PATIENT
  Age: 38 Year
  Sex: Female
  Weight: 96 kg

DRUGS (5)
  1. ISOPTIN SR [Suspect]
     Active Substance: VERAPAMIL HYDROCHLORIDE
     Indication: Headache
     Dosage: 160 MILLIGRAM
     Route: 048
     Dates: start: 202312, end: 202312
  2. ISOPTIN SR [Suspect]
     Active Substance: VERAPAMIL HYDROCHLORIDE
     Dosage: 240 MILLIGRAM
     Route: 048
     Dates: start: 20231223
  3. ISOPTIN SR [Suspect]
     Active Substance: VERAPAMIL HYDROCHLORIDE
     Dosage: 80 MILLIGRAM
     Route: 048
     Dates: start: 202312, end: 202312
  4. NIMESULIDE [Concomitant]
     Active Substance: NIMESULIDE
     Indication: Migraine
     Dosage: 100 MILLIGRAM, PRN, USES ONLY WHEN HAVING MIGRAINES, APPROXIMATELY ONCE A WEEK
     Route: 048
  5. LORATADINE\PSEUDOEPHEDRINE SULFATE [Concomitant]
     Active Substance: LORATADINE\PSEUDOEPHEDRINE SULFATE
     Indication: Hypersensitivity
     Dosage: 5 MILLIGRAM, PRN, USES BEFORE HAIR DYING DUE TO ALLERGY TO HAIR DYES
     Route: 048

REACTIONS (1)
  - Pruritus [Recovered/Resolved]

NARRATIVE: CASE EVENT DATE: 20231227
